FAERS Safety Report 6823075-9 (Version None)
Quarter: 2010Q3

REPORT INFORMATION
  Report Type: 
  Country: None (occurrence: None)
  Receive Date: 20100702
  Receipt Date: 20100622
  Transmission Date: 20110219
  Serious: Yes (Hospitalization)
  Sender: FDA-Public Use
  Company Number: 7006592

PATIENT
  Age: 61 Year
  Sex: Female

DRUGS (3)
  1. REBIF [Suspect]
     Indication: MULTIPLE SCLEROSIS
     Dosage: 44 MCG, 3 IN 1 WK, SUBCUTANEOUS
     Route: 058
     Dates: start: 20090831
  2. CRESTOR [Concomitant]
  3. ESTRATEST [Concomitant]

REACTIONS (8)
  - ASTHENIA [None]
  - CYST [None]
  - GAIT DISTURBANCE [None]
  - INFECTED CYST [None]
  - MALAISE [None]
  - STAPHYLOCOCCAL INFECTION [None]
  - TREMOR [None]
  - VOMITING [None]
